FAERS Safety Report 16715415 (Version 1)
Quarter: 2019Q3

REPORT INFORMATION
  Report Type: Spontaneous
  Country: US (occurrence: US)
  Receive Date: 20190702
  Receipt Date: 20190702
  Transmission Date: 20191005
  Serious: Yes (Other)
  Sender: FDA-Public Use
  Company Number: None

PATIENT
  Age: 12 Year
  Sex: Male
  Weight: 60.33 kg

DRUGS (1)
  1. MONTELUKAST [Suspect]
     Active Substance: MONTELUKAST SODIUM
     Indication: ASTHMA
     Dates: start: 20180524, end: 20180610

REACTIONS (6)
  - Headache [None]
  - Suicidal ideation [None]
  - Anxiety [None]
  - Nightmare [None]
  - Abdominal pain upper [None]
  - Pollakiuria [None]

NARRATIVE: CASE EVENT DATE: 20180524
